APPROVED DRUG PRODUCT: LIRAGLUTIDE
Active Ingredient: LIRAGLUTIDE
Strength: 18MG/3ML (6MG/ML)
Dosage Form/Route: SOLUTION;SUBCUTANEOUS
Application: A214568 | Product #001 | TE Code: AP2
Applicant: TEVA PHARMACEUTICALS DEVELOPMENT INC
Approved: Aug 27, 2025 | RLD: No | RS: No | Type: RX

EXCLUSIVITY:
Code: PC | Date: Feb 24, 2026